FAERS Safety Report 7355509-8 (Version None)
Quarter: 2011Q1

REPORT INFORMATION
  Report Type: 
  Country: None (occurrence: None)
  Receive Date: 20110316
  Receipt Date: 20110309
  Transmission Date: 20110831
  Serious: Yes (Other)
  Sender: FDA-Public Use
  Company Number: A0917368A

PATIENT
  Age: 65 Year
  Sex: Female

DRUGS (3)
  1. INHALER [Concomitant]
  2. ANTIBIOTICS [Concomitant]
  3. ADVAIR DISKUS 100/50 [Suspect]
     Indication: BRONCHITIS
     Dosage: 1PUFF TWICE PER DAY
     Route: 055
     Dates: start: 20110302

REACTIONS (3)
  - METASTASES TO LUNG [None]
  - CHEST DISCOMFORT [None]
  - PULMONARY MASS [None]
